FAERS Safety Report 10055957 (Version 1)
Quarter: 2014Q2

REPORT INFORMATION
  Report Type: Spontaneous
  Country: US (occurrence: US)
  Receive Date: 20140403
  Receipt Date: 20140403
  Transmission Date: 20141212
  Serious: No
  Sender: FDA-Public Use
  Company Number: US-PFIZER INC-2014090473

PATIENT
  Age: 75 Year
  Sex: Female
  Weight: 81.63 kg

DRUGS (2)
  1. LATANOPROST [Suspect]
     Indication: GLAUCOMA
     Dosage: 1 DROP IN EACH EYE, DAILY
     Route: 047
     Dates: end: 201403
  2. TYLENOL [Concomitant]
     Indication: ARTHRALGIA
     Dosage: UNK, 1X/DAY

REACTIONS (5)
  - Eye irritation [Unknown]
  - Eye pain [Unknown]
  - Eye discharge [Unknown]
  - Ocular hyperaemia [Unknown]
  - Photophobia [Unknown]
